FAERS Safety Report 7582580-0 (Version None)
Quarter: 2011Q2

REPORT INFORMATION
  Report Type: 
  Country: None (occurrence: None)
  Receive Date: 20110630
  Receipt Date: 20110620
  Transmission Date: 20111010
  Serious: Yes (Hospitalization, Other)
  Sender: FDA-Public Use
  Company Number: US-ASTELLAS-2011US002166

PATIENT
  Sex: Male
  Weight: 72 kg

DRUGS (5)
  1. PROGRAF [Suspect]
     Indication: CHRONIC GRAFT VERSUS HOST DISEASE
     Dosage: 1 MG, Q12 HOURS
     Route: 048
  2. CELLCEPT [Suspect]
     Indication: CHRONIC GRAFT VERSUS HOST DISEASE
     Dosage: UNK
     Route: 065
  3. PREDNISONE [Suspect]
     Indication: CHRONIC GRAFT VERSUS HOST DISEASE
     Dosage: ALTERNATED DAY
     Route: 065
  4. PROGRAF [Suspect]
     Indication: BONE MARROW TRANSPLANT
     Dosage: 3 MG, UID/QD
     Route: 065
     Dates: start: 20060601
  5. RITUXAN [Suspect]
     Indication: CHRONIC GRAFT VERSUS HOST DISEASE
     Dosage: EVERY 3 MONTHS
     Route: 065

REACTIONS (10)
  - OFF LABEL USE [None]
  - CHRONIC GRAFT VERSUS HOST DISEASE [None]
  - INFECTION [None]
  - HAEMOGLOBIN DECREASED [None]
  - BLOOD THYROID STIMULATING HORMONE INCREASED [None]
  - VOMITING [None]
  - PNEUMONIA [None]
  - DIARRHOEA [None]
  - NAUSEA [None]
  - ABDOMINAL PAIN [None]
